FAERS Safety Report 16445772 (Version 2)
Quarter: 2019Q3

REPORT INFORMATION
  Report Type: Spontaneous
  Country: US (occurrence: US)
  Receive Date: 20190618
  Receipt Date: 20190715
  Transmission Date: 20191004
  Serious: Yes (Other)
  Sender: FDA-Public Use
  Company Number: US-PFIZER INC-2016406462

PATIENT
  Age: 3 Year
  Sex: Male

DRUGS (3)
  1. BENEFIX [Suspect]
     Active Substance: COAGULATION FACTOR IX RECOMBINANT HUMAN\ISOPROPYL ALCOHOL
     Indication: HAEMORRHAGE
     Dosage: UNK UNK, DAILY (INFUSE BENEFIX 1200 UNITS (+5%) = 100 UNITS/KG DAILY ON DEMAND)
  2. BENEFIX [Suspect]
     Active Substance: COAGULATION FACTOR IX RECOMBINANT HUMAN\ISOPROPYL ALCOHOL
     Indication: FACTOR IX DEFICIENCY
     Dosage: UNK UNK, DAILY (TOTAL DOSAGE 800IU+/-5% %DOSE: 100% OF DOSES: 3)
  3. BENEFIX [Suspect]
     Active Substance: COAGULATION FACTOR IX RECOMBINANT HUMAN\ISOPROPYL ALCOHOL
     Dosage: INFUSE BENEFIX 2800 UNITS (+5%) = 100 UNITS/KG DAILY ON DEMAND FOR A BLEED

REACTIONS (2)
  - Haemorrhage [Unknown]
  - Haemarthrosis [Unknown]
